FAERS Safety Report 13549521 (Version 1)
Quarter: 2017Q2

REPORT INFORMATION
  Report Type: Spontaneous
  Country: US (occurrence: US)
  Receive Date: 20170516
  Receipt Date: 20170516
  Transmission Date: 20170830
  Serious: No
  Sender: FDA-Public Use
  Company Number: US-TEVA-751770ACC

PATIENT
  Sex: Female

DRUGS (1)
  1. TRIPLE ANTIBIOTIC [Suspect]
     Active Substance: BACITRACIN ZINC\NEOMYCIN\NEOMYCIN SULFATE\POLYMYXIN B SULFATE
     Indication: ANIMAL SCRATCH
     Dates: start: 20170310, end: 20170315

REACTIONS (5)
  - Drug hypersensitivity [Recovered/Resolved]
  - Dermatitis allergic [Recovered/Resolved]
  - Pruritus allergic [Recovered/Resolved]
  - Erythema [Recovered/Resolved]
  - Blister [Recovered/Resolved]

NARRATIVE: CASE EVENT DATE: 20170310
